FAERS Safety Report 18126019 (Version 1)
Quarter: 2020Q3

REPORT INFORMATION
  Report Type: Spontaneous
  Country: US (occurrence: US)
  Receive Date: 20200807
  Receipt Date: 20200807
  Transmission Date: 20201103
  Serious: No
  Sender: FDA-Public Use
  Company Number: US-PURDUE-USA-2020-0149838

PATIENT
  Age: 48 Year
  Sex: Male

DRUGS (5)
  1. BUPRENORPHINE TRANSDERMAL PATCH (SIMILAR TO NDA 21?306) [Suspect]
     Active Substance: BUPRENORPHINE
     Indication: ARTHRITIS
     Dosage: 20 MCG/HR, WEEKLY
     Route: 062
     Dates: start: 201806
  2. BUPRENORPHINE TRANSDERMAL PATCH (SIMILAR TO NDA 21?306) [Suspect]
     Active Substance: BUPRENORPHINE
     Dosage: 15 MCG/HR, WEEKLY
     Route: 062
     Dates: end: 201906
  3. BUPRENORPHINE TRANSDERMAL PATCH (SIMILAR TO NDA 21?306) [Suspect]
     Active Substance: BUPRENORPHINE
     Dosage: 10 MCG/HR, WEEKLY
     Route: 062
     Dates: start: 201906
  4. BUPRENORPHINE TRANSDERMAL PATCH (SIMILAR TO NDA 21?306) [Suspect]
     Active Substance: BUPRENORPHINE
     Dosage: 10 MCG/HR, WEEKLY
     Route: 062
     Dates: start: 201912
  5. BUPRENORPHINE TRANSDERMAL PATCH (SIMILAR TO NDA 21?306) [Suspect]
     Active Substance: BUPRENORPHINE
     Dosage: 10 MCG/HR, WEEKLY
     Route: 062
     Dates: start: 202001

REACTIONS (10)
  - Application site swelling [Not Recovered/Not Resolved]
  - Restless legs syndrome [Recovered/Resolved]
  - Product residue present [Unknown]
  - Application site pruritus [Not Recovered/Not Resolved]
  - Wrong technique in product usage process [Unknown]
  - Insomnia [Recovered/Resolved]
  - Application site urticaria [Not Recovered/Not Resolved]
  - Application site erythema [Not Recovered/Not Resolved]
  - Therapeutic product effect decreased [Recovered/Resolved]
  - Drug withdrawal syndrome [Unknown]

NARRATIVE: CASE EVENT DATE: 201906
